FAERS Safety Report 5363541-9 (Version None)
Quarter: 2007Q2

REPORT INFORMATION
  Report Type: 
  Country: None (occurrence: None)
  Receive Date: 20070618
  Receipt Date: 20070618
  Transmission Date: 20071010
  Serious: Yes (Other)
  Sender: FDA-Public Use
  Company Number: None

PATIENT
  Age: 55 Year
  Sex: Female
  Weight: 133.8111 kg

DRUGS (2)
  1. SPIRONOLACTONE [Suspect]
     Indication: HIRSUTISM
     Dosage: 6 TABLETS -150MG- QD PO
     Route: 048
     Dates: start: 20010311, end: 20070615
  2. SPIRONOLACTONE [Suspect]
     Indication: OEDEMA PERIPHERAL
     Dosage: 6 TABLETS -150MG- QD PO
     Route: 048
     Dates: start: 20010311, end: 20070615

REACTIONS (3)
  - BREAST CANCER [None]
  - OESTROGEN RECEPTOR ASSAY POSITIVE [None]
  - PROGESTERONE RECEPTOR ASSAY POSITIVE [None]
